FAERS Safety Report 17004344 (Version 1)
Quarter: 2019Q4

REPORT INFORMATION
  Report Type: Spontaneous
  Country: FR (occurrence: FR)
  Receive Date: 20191107
  Receipt Date: 20191107
  Transmission Date: 20200122
  Serious: Yes (Hospitalization, Other)
  Sender: FDA-Public Use
  Company Number: FR-PFIZER INC-2019477083

PATIENT
  Age: 79 Year
  Sex: Female
  Weight: 63 kg

DRUGS (16)
  1. DERMOVAL [CLOBETASOL PROPIONATE] [Suspect]
     Active Substance: CLOBETASOL PROPIONATE
     Dosage: 1 DF, 1X/DAY
     Route: 003
     Dates: start: 20190926, end: 20190930
  2. SERETIDE [Suspect]
     Active Substance: FLUTICASONE PROPIONATE\SALMETEROL XINAFOATE
     Dosage: 2 DF, 1X/DAY
     Route: 055
     Dates: start: 201807, end: 20190930
  3. PANTOPRAZOLE [Suspect]
     Active Substance: PANTOPRAZOLE
     Dosage: 20 MG, 1X/DAY
     Route: 065
     Dates: start: 20190926, end: 20190930
  4. LIPANTHYL [Suspect]
     Active Substance: FENOFIBRATE
     Indication: DYSLIPIDAEMIA
     Dosage: 145 MG, 1X/DAY
     Route: 048
     Dates: start: 2010, end: 20191001
  5. IPRATROPIUM BROMIDE\FENOTEROL HYDROBROMIDE [Suspect]
     Active Substance: FENOTEROL HYDROBROMIDE\IPRATROPIUM BROMIDE
     Dosage: UNK
     Route: 065
     Dates: start: 20190926, end: 20190930
  6. LAMALINE (ACETAMINOPHEN\CAFFEINE\OPIUM) [Suspect]
     Active Substance: ACETAMINOPHEN\CAFFEINE\OPIUM
     Dosage: 3 DF, 1X/DAY
     Route: 048
     Dates: start: 20190926, end: 20190930
  7. IBUPROFEN. [Suspect]
     Active Substance: IBUPROFEN
     Dosage: UNK
     Route: 061
     Dates: start: 20190926, end: 20190930
  8. BIPRETERAX [INDAPAMIDE;PERINDOPRIL ARGININE] [Suspect]
     Active Substance: INDAPAMIDE\PERINDOPRIL ARGININE
     Indication: HYPERTENSION
     Dosage: 10/2.5 MILLIGRAM,QD
     Route: 048
     Dates: start: 201810, end: 20190930
  9. VOLTARENE (DICLOFENAC SODIUM) [Suspect]
     Active Substance: DICLOFENAC SODIUM
     Dosage: 1 DF, 1X/DAY (1 TABLET DAILY, 5 DAYS IN A WEEK)
     Route: 048
     Dates: start: 201907, end: 20190930
  10. RHINOCORT [Suspect]
     Active Substance: BUDESONIDE
     Dosage: 128 MG, 1X/DAY
     Route: 045
     Dates: start: 201904, end: 20190930
  11. VERAPAMIL [Concomitant]
     Active Substance: VERAPAMIL HYDROCHLORIDE
     Dosage: UNK
  12. SEBIPROX [Suspect]
     Active Substance: CICLOPIROX OLAMINE
     Dosage: UNK
     Route: 065
     Dates: start: 20190926, end: 20190930
  13. RILMENIDINE [Suspect]
     Active Substance: RILMENIDINE
     Indication: HYPERTENSION
     Dosage: 2 DF, 1X/DAY
     Route: 048
     Dates: start: 2010, end: 20191001
  14. PIVALONE (TIXOCORTOL PIVALATE) [Suspect]
     Active Substance: TIXOCORTOL PIVALATE
     Dosage: UNK
     Route: 045
     Dates: start: 20190926, end: 20190930
  15. LYRICA [Suspect]
     Active Substance: PREGABALIN
     Dosage: 2 DF, 1X/DAY
     Route: 048
     Dates: start: 20190926, end: 20190930
  16. FUROSEMIDE. [Suspect]
     Active Substance: FUROSEMIDE
     Indication: HYPERTENSION
     Dosage: 1 DF, 1X/DAY
     Route: 048
     Dates: start: 201807, end: 20190930

REACTIONS (3)
  - Rhabdomyolysis [Recovering/Resolving]
  - Acute kidney injury [Recovering/Resolving]
  - Asthenia [Recovered/Resolved]

NARRATIVE: CASE EVENT DATE: 20190930
